FAERS Safety Report 24159359 (Version 1)
Quarter: 2024Q3

REPORT INFORMATION
  Report Type: Spontaneous
  Country: US (occurrence: US)
  Receive Date: 20240731
  Receipt Date: 20240731
  Transmission Date: 20241016
  Serious: No
  Sender: AURINIA PHARMACEUTICALS
  Company Number: US-AURINIA PHARMACEUTICALS INC.-AUR-005247

PATIENT
  Sex: Male

DRUGS (1)
  1. LUPKYNIS [Suspect]
     Active Substance: VOCLOSPORIN
     Indication: Lupus nephritis
     Dosage: 23.7 MILLIGRAM, BID
     Route: 048
     Dates: start: 20240319

REACTIONS (7)
  - Mobility decreased [Recovering/Resolving]
  - Peripheral swelling [Recovered/Resolved]
  - Fatigue [Unknown]
  - Nausea [Unknown]
  - Retching [Unknown]
  - Headache [Not Recovered/Not Resolved]
  - Decreased appetite [Unknown]
